FAERS Safety Report 8123444-3 (Version None)
Quarter: 2012Q1

REPORT INFORMATION
  Report Type: 
  Country: None (occurrence: None)
  Receive Date: 20120208
  Receipt Date: 20120130
  Transmission Date: 20120608
  Serious: Yes (Hospitalization)
  Sender: FDA-Public Use
  Company Number: PHHY2012FR007973

PATIENT
  Age: 71 Year
  Sex: Female

DRUGS (3)
  1. AFINITOR [Suspect]
     Dosage: 8 MG DAILY
     Route: 048
     Dates: end: 20110905
  2. MORPHINE [Concomitant]
  3. AFINITOR [Suspect]
     Indication: RECTAL CANCER METASTATIC
     Dosage: 10 MG, QD
     Route: 048
     Dates: start: 20110805

REACTIONS (9)
  - DYSPHAGIA [None]
  - VOMITING [None]
  - ORAL DISORDER [None]
  - PAIN [None]
  - APHTHOUS STOMATITIS [None]
  - HYPOPHAGIA [None]
  - RADIATION MUCOSITIS [None]
  - EAR PAIN [None]
  - OESOPHAGITIS [None]
